FAERS Safety Report 5037583-7 (Version None)
Quarter: 2006Q2

REPORT INFORMATION
  Report Type: 
  Country: None (occurrence: None)
  Receive Date: 20060628
  Receipt Date: 20060509
  Transmission Date: 20061013
  Serious: Yes (Hospitalization)
  Sender: FDA-Public Use
  Company Number: 2006R041249

PATIENT
  Age: 16 Year
  Sex: Female

DRUGS (1)
  1. CEFUROXIME AXETIL [Suspect]
     Indication: ACUTE TONSILLITIS
     Dosage: 250MG TWICE PER DAY
     Route: 048
     Dates: start: 20060413, end: 20060424

REACTIONS (2)
  - CONVULSION [None]
  - PETIT MAL EPILEPSY [None]
